FAERS Safety Report 9563431 (Version 1)
Quarter: 2013Q1

REPORT INFORMATION
  Report Type: Spontaneous
  Country: US (occurrence: None)
  Receive Date: 20121227
  Receipt Date: 20121227
  Transmission Date: 20140127
  Serious: Yes (Hospitalization)
  Sender: FDA-Public Use
  Company Number: PHEH2011US08482

PATIENT
  Sex: Female

DRUGS (3)
  1. EXJADE (*CGP 72670*) UNKNOWN [Suspect]
     Indication: IRON OVERLOAD
     Route: 048
     Dates: start: 200906
  2. VALTREX (VALACICLOVIR HYDROCHLORIDE) [Concomitant]
  3. VIDAZA (AZACITIDINE) [Concomitant]

REACTIONS (2)
  - Pyrexia [None]
  - Neutropenia [None]
